FAERS Safety Report 8040790-2 (Version None)
Quarter: 2012Q1

REPORT INFORMATION
  Report Type: 
  Country: None (occurrence: None)
  Receive Date: 20120112
  Receipt Date: 20120105
  Transmission Date: 20120608
  Serious: No
  Sender: FDA-Public Use
  Company Number: US-AMGEN-USASP2011064512

PATIENT
  Age: 53 Year
  Sex: Female

DRUGS (1)
  1. ENBREL [Suspect]
     Indication: RHEUMATOID ARTHRITIS
     Dosage: 50 MG, QWK
     Dates: start: 20100506, end: 20111120

REACTIONS (4)
  - EAR PRURITUS [None]
  - DYSPHONIA [None]
  - FATIGUE [None]
  - UPPER RESPIRATORY TRACT INFECTION [None]
